FAERS Safety Report 8603091 (Version 2)
Quarter: 2012Q4

REPORT INFORMATION
  Report Type: 
  Country: US (occurrence: US)
  Receive Date: 20120607
  Receipt Date: 20121224
  Transmission Date: 20130627
  Serious: Yes (Hospitalization, Other)
  Sender: FDA-Public Use
  Company Number: US-ROCHE-1074682

PATIENT
  Age: 69 Year
  Sex: Female

DRUGS (10)
  1. BONIVA [Suspect]
     Indication: OSTEOPOROSIS
     Route: 048
     Dates: start: 2007
  2. BONIVA [Suspect]
     Route: 048
     Dates: start: 20080522
  3. BONIVA [Suspect]
     Route: 048
     Dates: start: 20080825
  4. BONIVA [Suspect]
     Route: 048
     Dates: start: 20081215
  5. BONIVA [Suspect]
     Route: 048
     Dates: start: 20090407
  6. BONIVA [Suspect]
     Route: 048
     Dates: start: 20090720
  7. BONIVA [Suspect]
     Route: 048
     Dates: start: 20091019
  8. BONIVA [Suspect]
     Route: 048
     Dates: start: 20100125
  9. FOSAMAX [Suspect]
     Indication: OSTEOPOROSIS
     Route: 065
     Dates: start: 20020214, end: 20070529
  10. FEMARA [Concomitant]
     Route: 065

REACTIONS (2)
  - Femoral neck fracture [Unknown]
  - Injury [Unknown]
